FAERS Safety Report 4691091-1 (Version None)
Quarter: 2005Q2

REPORT INFORMATION
  Report Type: 
  Country: None (occurrence: None)
  Receive Date: 20050610
  Receipt Date: 20050525
  Transmission Date: 20051028
  Serious: Yes (Hospitalization)
  Sender: FDA-Public Use
  Company Number: 215072

PATIENT
  Age: 57 Year
  Sex: Female
  Weight: 64.4 kg

DRUGS (10)
  1. AVASTIN [Suspect]
     Indication: COLORECTAL CANCER METASTATIC
     Dosage: 320 MG, Q2W, INTRAVENOUS
     Route: 042
     Dates: start: 20050517
  2. IRINOTECAN                     (IRINOTECAN HYDROCHLORIDE) [Suspect]
     Indication: COLORECTAL CANCER METASTATIC
     Dosage: 300 MG, Q2W, INTRAVENOUS
     Route: 042
     Dates: start: 20050517, end: 20050517
  3. FLUOROURACIL [Suspect]
     Indication: COLORECTAL CANCER METASTATIC
     Dosage: SEE IMAGE
     Route: 040
     Dates: start: 20050517, end: 20050517
  4. FLUOROURACIL [Suspect]
     Indication: COLORECTAL CANCER METASTATIC
     Dosage: SEE IMAGE
     Route: 040
     Dates: start: 20050517, end: 20050517
  5. LEUCOVORIN CALCIUM [Suspect]
     Indication: COLORECTAL CANCER METASTATIC
     Dosage: 50 MG, Q2W, INTRAVENOUS
     Route: 042
     Dates: start: 20050517, end: 20050517
  6. NEXIUM [Concomitant]
  7. MAGNESIUM (MAGNESUM NOS) [Concomitant]
  8. ATROPINE [Concomitant]
  9. ANZEMET (DOLASETRON MEYSLATE) [Concomitant]
  10. DEXAMETHASONE [Concomitant]

REACTIONS (14)
  - ABDOMINAL DISCOMFORT [None]
  - ATRIAL FIBRILLATION [None]
  - CHEST DISCOMFORT [None]
  - CONSTIPATION [None]
  - DIARRHOEA [None]
  - DIZZINESS [None]
  - DYSPNOEA [None]
  - FLUID RETENTION [None]
  - HEADACHE [None]
  - HEART RATE INCREASED [None]
  - NECK PAIN [None]
  - PLEURAL EFFUSION [None]
  - RETCHING [None]
  - VOMITING [None]
